FAERS Safety Report 21916029 (Version 1)
Quarter: 2023Q1

REPORT INFORMATION
  Report Type: Spontaneous
  Country: CA (occurrence: CA)
  Receive Date: 20230126
  Receipt Date: 20230126
  Transmission Date: 20230418
  Serious: Yes (Other)
  Sender: FDA-Public Use
  Company Number: CA-BAYER-2023P005018

PATIENT
  Age: 37 Year
  Sex: Female

DRUGS (1)
  1. YASMIN [Suspect]
     Active Substance: DROSPIRENONE\ETHINYL ESTRADIOL
     Indication: Contraception
     Dosage: UNK
     Route: 048
     Dates: start: 20080417, end: 20100908

REACTIONS (4)
  - Thrombotic stroke [None]
  - Cerebrovascular accident [Recovering/Resolving]
  - Hemiplegia [None]
  - Paradoxical embolism [None]

NARRATIVE: CASE EVENT DATE: 20100901
